FAERS Safety Report 19506520 (Version 1)
Quarter: 2021Q3

REPORT INFORMATION
  Report Type: Spontaneous
  Country: US (occurrence: US)
  Receive Date: 20210708
  Receipt Date: 20210708
  Transmission Date: 20211014
  Serious: Yes (Hospitalization)
  Sender: FDA-Public Use
  Company Number: None

PATIENT
  Age: 57 Year
  Sex: Male
  Weight: 111.06 kg

DRUGS (4)
  1. 5?FLUOROURACIL [Suspect]
     Active Substance: FLUOROURACIL
     Indication: COLORECTAL CANCER
     Dosage: ?          OTHER FREQUENCY:ONCE;?
     Route: 040
  2. 5FU INFUSION PUMP [Concomitant]
     Dates: start: 20210630, end: 20210701
  3. OXALIPLATIN. [Suspect]
     Active Substance: OXALIPLATIN
     Indication: COLORECTAL CANCER
     Dosage: ?          OTHER FREQUENCY:ONCE;?
     Route: 041
  4. LEUCOVORIN. [Suspect]
     Active Substance: LEUCOVORIN

REACTIONS (3)
  - Trismus [None]
  - Hypophosphataemia [None]
  - Muscle spasms [None]

NARRATIVE: CASE EVENT DATE: 20210701
